FAERS Safety Report 9239821 (Version 2)
Quarter: 2013Q4

REPORT INFORMATION
  Report Type: Spontaneous
  Country: DE (occurrence: DE)
  Receive Date: 20130418
  Receipt Date: 20131021
  Transmission Date: 20140711
  Serious: Yes (Hospitalization, Other)
  Sender: FDA-Public Use
  Company Number: DE-ASTRAZENECA-2013SE25107

PATIENT
  Age: 61 Year
  Sex: Female

DRUGS (19)
  1. SEROQUEL PROLONG [Suspect]
     Indication: BIPOLAR DISORDER
     Route: 048
     Dates: start: 20120927, end: 20120929
  2. SEROQUEL PROLONG [Suspect]
     Indication: BIPOLAR DISORDER
     Route: 048
     Dates: start: 20120930, end: 20121001
  3. SEROQUEL PROLONG [Suspect]
     Indication: BIPOLAR DISORDER
     Route: 048
     Dates: start: 20121002, end: 20121005
  4. SEROQUEL PROLONG [Suspect]
     Indication: BIPOLAR DISORDER
     Route: 048
     Dates: start: 20121006, end: 20121017
  5. SEROQUEL PROLONG [Suspect]
     Indication: BIPOLAR DISORDER
     Route: 048
     Dates: start: 20121018, end: 20121104
  6. SEROQUEL PROLONG [Suspect]
     Indication: BIPOLAR DISORDER
     Route: 048
     Dates: start: 20121105, end: 20121123
  7. SEROQUEL PROLONG [Suspect]
     Indication: BIPOLAR DISORDER
     Route: 048
     Dates: start: 20121124, end: 20121129
  8. SEROQUEL PROLONG [Suspect]
     Indication: BIPOLAR DISORDER
     Route: 048
     Dates: start: 20121130, end: 20130126
  9. AMITRIPTYLIN [Suspect]
     Route: 048
     Dates: start: 20121029, end: 20121101
  10. AMITRIPTYLIN [Suspect]
     Route: 048
     Dates: start: 20121102, end: 20121104
  11. AMITRIPTYLIN [Suspect]
     Route: 048
     Dates: start: 20121105, end: 20121116
  12. AMITRIPTYLIN [Suspect]
     Route: 048
     Dates: start: 20121117, end: 20121122
  13. AMITRIPTYLIN [Suspect]
     Route: 048
     Dates: start: 20121123, end: 20121130
  14. AMITRIPTYLIN [Suspect]
     Route: 048
     Dates: start: 20121201
  15. HYPNOREX [Suspect]
     Route: 048
     Dates: start: 20120903, end: 20121122
  16. HYPNOREX [Suspect]
     Route: 048
     Dates: start: 20121123, end: 20121129
  17. HYPNOREX [Suspect]
     Route: 048
     Dates: start: 20121201
  18. SEROQUEL IR [Concomitant]
     Indication: BIPOLAR DISORDER
     Route: 048
     Dates: start: 20121201, end: 20130121
  19. L-THYROXIN [Concomitant]
     Route: 048
     Dates: start: 20120903

REACTIONS (10)
  - Ataxia [Recovered/Resolved]
  - Leukoencephalopathy [Unknown]
  - Speech disorder [Recovered/Resolved]
  - Balance disorder [Recovered/Resolved]
  - Speech disorder [Recovered/Resolved]
  - Apraxia [Recovered/Resolved]
  - Disorientation [Recovered/Resolved]
  - Judgement impaired [Recovered/Resolved]
  - Delusional perception [Recovered/Resolved]
  - Microangiopathy [Unknown]
